FAERS Safety Report 13012613 (Version 1)
Quarter: 2016Q4

REPORT INFORMATION
  Report Type: Spontaneous
  Country: US (occurrence: US)
  Receive Date: 20161208
  Receipt Date: 20161208
  Transmission Date: 20170207
  Serious: Yes (Other)
  Sender: FDA-Public Use
  Company Number: None

PATIENT
  Age: 9 Year
  Sex: Male
  Weight: 25.2 kg

DRUGS (2)
  1. ALBUTERAL INHALER [Concomitant]
  2. QVAR [Suspect]
     Active Substance: BECLOMETHASONE DIPROPIONATE
     Indication: ASTHMA
     Dosage: OTHER STRENGTH:MCG;QUANTITY:1 PUFF(S);?
     Route: 055
     Dates: start: 20161201, end: 20161207

REACTIONS (5)
  - Mood swings [None]
  - Depression [None]
  - Insomnia [None]
  - Headache [None]
  - Psychomotor hyperactivity [None]

NARRATIVE: CASE EVENT DATE: 20161207
